FAERS Safety Report 25729000 (Version 3)
Quarter: 2025Q4

REPORT INFORMATION
  Report Type: Report from Study
  Country: EU (occurrence: EU)
  Receive Date: 20250827
  Receipt Date: 20251218
  Transmission Date: 20260117
  Serious: Yes (Hospitalization)
  Sender: ABBVIE
  Company Number: EU-ABBVIE-6316874

PATIENT
  Age: 53 Year
  Sex: Male

DRUGS (3)
  1. FOSCARBIDOPA\FOSLEVODOPA [Suspect]
     Active Substance: FOSCARBIDOPA\FOSLEVODOPA
     Indication: Parkinson^s disease
     Dosage: CRN: 0.34 ML/H, CR: 0.46 ML/H, CRH: 0.48 ML/H, ED: 0.30 ML
     Route: 058
     Dates: start: 20250422, end: 2025
  2. FOSCARBIDOPA\FOSLEVODOPA [Suspect]
     Active Substance: FOSCARBIDOPA\FOSLEVODOPA
     Dosage: CRN: 0, 34 ML/H, CR: 0.44 ML/H, CRH: 0.46 ML/H, ED: 0.30 ML.
     Route: 058
     Dates: start: 2025, end: 2025
  3. FOSCARBIDOPA\FOSLEVODOPA [Suspect]
     Active Substance: FOSCARBIDOPA\FOSLEVODOPA
     Dosage: CRN: 0;27ML/H, CR: 0;37ML/H, CRH: 0;40ML/H, ED: ML 0.30ML
     Route: 058
     Dates: start: 2025

REACTIONS (10)
  - Muscle spasticity [Not Recovered/Not Resolved]
  - Dyskinesia [Not Recovered/Not Resolved]
  - On and off phenomenon [Not Recovered/Not Resolved]
  - Incorrect drug administration rate [Unknown]
  - Hyperhidrosis [Unknown]
  - Muscle spasms [Not Recovered/Not Resolved]
  - Aggression [Unknown]
  - Psychomotor hyperactivity [Unknown]
  - Intentional product misuse [Unknown]
  - Hyperkinesia [Not Recovered/Not Resolved]

NARRATIVE: CASE EVENT DATE: 20250101
